FAERS Safety Report 23804373 (Version 1)
Quarter: 2024Q2

REPORT INFORMATION
  Report Type: Spontaneous
  Country: US (occurrence: US)
  Receive Date: 20240501
  Receipt Date: 20240501
  Transmission Date: 20240716
  Serious: Yes (Hospitalization)
  Sender: FDA-Public Use
  Company Number: US-LEX-000258

PATIENT
  Sex: Male

DRUGS (21)
  1. INPEFA [Suspect]
     Active Substance: SOTAGLIFLOZIN
     Indication: Product used for unknown indication
     Route: 048
  2. TYLENOL [Concomitant]
     Active Substance: ACETAMINOPHEN
  3. ASPIRIN [Concomitant]
     Active Substance: ASPIRIN
  4. ALBUTEROL [Concomitant]
     Active Substance: ALBUTEROL
  5. POTASSIUM CHLORIDE [Concomitant]
     Active Substance: POTASSIUM CHLORIDE
  6. BUSPAR [Concomitant]
     Active Substance: BUSPIRONE HYDROCHLORIDE
  7. ZYRTEC [Concomitant]
     Active Substance: CETIRIZINE HYDROCHLORIDE
  8. VITAMIN B3 [Concomitant]
     Active Substance: NIACIN
  9. CRESTOR [Concomitant]
     Active Substance: ROSUVASTATIN CALCIUM
  10. PLAVIX [Concomitant]
     Active Substance: CLOPIDOGREL BISULFATE
  11. LASIX [Concomitant]
     Active Substance: FUROSEMIDE
  12. ATIVAN [Concomitant]
     Active Substance: LORAZEPAM
  13. PROTONIX [Concomitant]
     Active Substance: PANTOPRAZOLE SODIUM
  14. KENALOG [Concomitant]
     Active Substance: TRIAMCINOLONE ACETONIDE
  15. FLONASE [Concomitant]
     Active Substance: FLUTICASONE PROPIONATE
  16. Duo-neb [Concomitant]
  17. IMDUR [Concomitant]
     Active Substance: ISOSORBIDE MONONITRATE
  18. COZAAR [Concomitant]
     Active Substance: LOSARTAN POTASSIUM
  19. TOPROL XL [Concomitant]
     Active Substance: METOPROLOL SUCCINATE
  20. Glycolax SPN [Concomitant]
  21. AMBIEN [Concomitant]
     Active Substance: ZOLPIDEM TARTRATE

REACTIONS (1)
  - Hospitalisation [Not Recovered/Not Resolved]
